FAERS Safety Report 25040511 (Version 1)
Quarter: 2025Q1

REPORT INFORMATION
  Report Type: Spontaneous
  Country: FR (occurrence: FR)
  Receive Date: 20250305
  Receipt Date: 20250305
  Transmission Date: 20250408
  Serious: Yes (Hospitalization, Other)
  Sender: AUROBINDO
  Company Number: FR-AFSSAPS-BR2025000092

PATIENT
  Age: 83 Year
  Sex: Male

DRUGS (1)
  1. DULOXETINE [Suspect]
     Active Substance: DULOXETINE
     Indication: Depression
     Route: 048
     Dates: start: 20250117, end: 20250131

REACTIONS (4)
  - Hallucination, visual [Not Recovered/Not Resolved]
  - Extrapyramidal disorder [Recovering/Resolving]
  - Confusional state [Recovering/Resolving]
  - Condition aggravated [Recovering/Resolving]

NARRATIVE: CASE EVENT DATE: 20250120
